FAERS Safety Report 8225848-7 (Version None)
Quarter: 2012Q1

REPORT INFORMATION
  Report Type: 
  Country: None (occurrence: None)
  Receive Date: 20120321
  Receipt Date: 20120315
  Transmission Date: 20120608
  Serious: Yes (Hospitalization, Other)
  Sender: FDA-Public Use
  Company Number: US-PFIZER INC-2010150645

PATIENT
  Sex: Female
  Weight: 81.179 kg

DRUGS (7)
  1. LISINOPRIL [Concomitant]
     Dosage: UNK
  2. FISH OIL [Concomitant]
     Dosage: UNK
  3. KLOR-CON [Concomitant]
     Dosage: UNK
  4. LIPITOR [Suspect]
     Indication: BLOOD CHOLESTEROL INCREASED
     Dosage: 40 MG, 1X/DAY
     Route: 048
     Dates: start: 20010101
  5. XANAX [Suspect]
     Indication: ANXIETY
     Dosage: 1 MG, 1X/DAY
     Dates: start: 20000101
  6. NIACIN [Concomitant]
     Dosage: UNK
  7. CALCIUM [Concomitant]
     Dosage: UNK

REACTIONS (8)
  - SEDATION [None]
  - PNEUMONIA [None]
  - SINUSITIS [None]
  - SINUS CONGESTION [None]
  - DIABETES MELLITUS [None]
  - LOCALISED INFECTION [None]
  - BRONCHITIS [None]
  - CEREBROVASCULAR ACCIDENT [None]
